FAERS Safety Report 9500990 (Version 2)
Quarter: 2013Q4

REPORT INFORMATION
  Report Type: Spontaneous
  Country: DE (occurrence: DE)
  Receive Date: 20130905
  Receipt Date: 20131217
  Transmission Date: 20140711
  Serious: Yes (Hospitalization, Other)
  Sender: FDA-Public Use
  Company Number: DE-009507513-1308DEU013497

PATIENT
  Age: 37 Year
  Sex: Female
  Weight: 65 kg

DRUGS (2)
  1. NUVARING [Suspect]
     Indication: CONTRACEPTION
     Dosage: 1 RING/MONTH
     Route: 067
     Dates: start: 201206
  2. TRAMADOL HYDROCHLORIDE [Suspect]

REACTIONS (4)
  - Epilepsy [Recovered/Resolved with Sequelae]
  - Grand mal convulsion [Recovered/Resolved with Sequelae]
  - Stress [Unknown]
  - Insomnia [Unknown]
